FAERS Safety Report 5724311-2 (Version None)
Quarter: 2008Q2

REPORT INFORMATION
  Report Type: 
  Country: None (occurrence: None)
  Receive Date: 20080428
  Receipt Date: 20080418
  Transmission Date: 20081010
  Serious: Yes (Hospitalization, Congenital Anomaly, Other)
  Sender: FDA-Public Use
  Company Number: 2008AL002369

PATIENT
  Sex: Male
  Weight: 3 kg

DRUGS (1)
  1. PROPYLTHIOURACIL TAB [Suspect]
     Indication: DRUG EXPOSURE DURING PREGNANCY
     Dosage: TRPL
     Route: 064

REACTIONS (13)
  - BLOOD POTASSIUM DECREASED [None]
  - CAESAREAN SECTION [None]
  - CONGENITAL HYPOTHYROIDISM [None]
  - GOITRE CONGENITAL [None]
  - HAEMOGLOBIN DECREASED [None]
  - INTERCOSTAL RETRACTION [None]
  - LIMB HYPOPLASIA CONGENITAL [None]
  - MATERNAL DRUGS AFFECTING FOETUS [None]
  - NEONATAL DISORDER [None]
  - NEONATAL TACHYCARDIA [None]
  - NEONATAL TACHYPNOEA [None]
  - PCO2 DECREASED [None]
  - PO2 INCREASED [None]
